FAERS Safety Report 4683117-6 (Version None)
Quarter: 2005Q2

REPORT INFORMATION
  Report Type: 
  Country: None (occurrence: None)
  Receive Date: 20050602
  Receipt Date: 20050325
  Transmission Date: 20051028
  Serious: No
  Sender: FDA-Public Use
  Company Number: USA050394122

PATIENT
  Age: 41 Year
  Sex: Female

DRUGS (2)
  1. CYMBALTA [Suspect]
     Indication: ANXIETY
     Dosage: 60 MG IN THE MORNING
     Dates: start: 20050101
  2. MIRCETTE [Concomitant]

REACTIONS (6)
  - DRY MOUTH [None]
  - EAR DISCOMFORT [None]
  - INSOMNIA [None]
  - PHARYNGEAL OEDEMA [None]
  - PHARYNGITIS STREPTOCOCCAL [None]
  - TINNITUS [None]
